FAERS Safety Report 4464055-0 (Version None)
Quarter: 2004Q4

REPORT INFORMATION
  Report Type: 
  Country: None (occurrence: None)
  Receive Date: 20041001
  Receipt Date: 20040920
  Transmission Date: 20050328
  Serious: Yes (Other)
  Sender: FDA-Public Use
  Company Number: US-BRISTOL-MYERS SQUIBB COMPANY-12709283

PATIENT
  Age: 80 Year
  Sex: Male

DRUGS (9)
  1. WARFARIN SODIUM [Interacting]
  2. AZITHROMYCIN [Interacting]
     Route: 048
  3. AMPICILLIN [Suspect]
  4. APAP TAB [Suspect]
  5. GENTAMYCIN SULFATE [Suspect]
  6. DIGOXIN [Concomitant]
  7. GLIPIZIDE [Concomitant]
  8. METFORMIN HCL [Concomitant]
  9. ASPIRIN [Concomitant]

REACTIONS (4)
  - ASTHENIA [None]
  - DRUG INTERACTION [None]
  - FALL [None]
  - INTERNATIONAL NORMALISED RATIO INCREASED [None]
